FAERS Safety Report 5557052-5 (Version None)
Quarter: 2007Q4

REPORT INFORMATION
  Report Type: 
  Country: None (occurrence: None)
  Receive Date: 20071214
  Receipt Date: 20071212
  Transmission Date: 20080405
  Serious: Yes (Hospitalization)
  Sender: FDA-Public Use
  Company Number: FR-WYE-G00762607

PATIENT
  Sex: Male

DRUGS (8)
  1. TAZOCILLINE [Suspect]
     Route: 042
     Dates: start: 20070831, end: 20071009
  2. NEORAL [Suspect]
     Indication: BONE MARROW FAILURE
     Route: 048
     Dates: start: 20070831
  3. TAVANIC [Suspect]
     Dosage: UNKNOWN
     Dates: start: 20071002, end: 20071001
  4. COLIMYCINE [Suspect]
     Dosage: UNKNOWN
     Route: 048
     Dates: start: 20070901
  5. POSACONAZOLE [Suspect]
     Route: 042
     Dates: start: 20070901, end: 20071004
  6. INEXIUM [Suspect]
     Dosage: UNKNOWN
     Route: 042
     Dates: start: 20070914
  7. NEUPOGEN [Suspect]
     Indication: NEUTROPENIA
     Dosage: UNKNOWN
     Route: 042
     Dates: start: 20070905
  8. ACYCLOVIR [Suspect]
     Route: 042
     Dates: start: 20070914

REACTIONS (2)
  - CYTOLYTIC HEPATITIS [None]
  - HEPATITIS CHOLESTATIC [None]
